FAERS Safety Report 8972451 (Version 1)
Quarter: 2012Q4

REPORT INFORMATION
  Report Type: 
  Country: DE (occurrence: DE)
  Receive Date: 20121218
  Receipt Date: 20121218
  Transmission Date: 20130627
  Serious: Yes (Hospitalization)
  Sender: FDA-Public Use
  Company Number: DE-ROXANE LABORATORIES, INC.-2012-RO-02591RO

PATIENT
  Age: 71 Year
  Sex: Female

DRUGS (3)
  1. CITALOPRAM [Suspect]
     Indication: DEPRESSION
     Dosage: 10 mg
  2. CITALOPRAM [Suspect]
     Dosage: 20 mg
  3. BUDESONIDE/FORMOTEROL [Concomitant]
     Indication: BRONCHITIS CHRONIC
     Route: 055

REACTIONS (1)
  - Lupus-like syndrome [Recovered/Resolved]
